FAERS Safety Report 6588712-5 (Version None)
Quarter: 2010Q1

REPORT INFORMATION
  Report Type: 
  Country: None (occurrence: None)
  Receive Date: 20100218
  Receipt Date: 20100203
  Transmission Date: 20100710
  Serious: No
  Sender: FDA-Public Use
  Company Number: US-JNJFOC-20091004607

PATIENT
  Sex: Female
  Weight: 42.18 kg

DRUGS (6)
  1. DURAGESIC-100 [Suspect]
     Indication: BONE PAIN
     Dosage: TWO 100 MCG/HR PATCH
     Route: 062
  2. DURAGESIC-100 [Suspect]
     Route: 062
  3. PERCOCET [Concomitant]
     Indication: PAIN
     Route: 048
  4. MANY OTHER UNSPECIFIED MEDICATIONS [Concomitant]
  5. PREDNISONE [Concomitant]
     Indication: INFLAMMATION
     Route: 048
  6. ESTRADIOL [Concomitant]
     Indication: HYPERHIDROSIS
     Route: 048

REACTIONS (4)
  - DRUG INEFFECTIVE [None]
  - INADEQUATE ANALGESIA [None]
  - INAPPROPRIATE SCHEDULE OF DRUG ADMINISTRATION [None]
  - INCORRECT DOSE ADMINISTERED [None]
